FAERS Safety Report 5564474-5 (Version None)
Quarter: 2007Q4

REPORT INFORMATION
  Report Type: 
  Country: None (occurrence: None)
  Receive Date: 20071212
  Receipt Date: 20071130
  Transmission Date: 20080405
  Serious: Yes (Death)
  Sender: FDA-Public Use
  Company Number: 2007JP005410

PATIENT
  Age: 82 Year
  Sex: Male

DRUGS (2)
  1. VESICARE [Suspect]
     Indication: HYPERTONIC BLADDER
     Dosage: 5 MG, UNKNOWN/D, ORAL
     Route: 048
     Dates: start: 20070316, end: 20070407
  2. AVISHOT (NAFTOPIDIL) PER ORAL NOS [Suspect]
     Dosage: 25 MG, UNKNOWN/D, ORAL
     Route: 048
     Dates: end: 20070407

REACTIONS (1)
  - DEATH [None]
